FAERS Safety Report 6660008-2 (Version None)
Quarter: 2010Q1

REPORT INFORMATION
  Report Type: 
  Country: None (occurrence: None)
  Receive Date: 20100331
  Receipt Date: 20100319
  Transmission Date: 20100710
  Serious: Yes (Hospitalization, Other)
  Sender: FDA-Public Use
  Company Number: US-BIOGENIDEC-2010BI010205

PATIENT
  Sex: Female
  Weight: 122 kg

DRUGS (41)
  1. AVONEX [Suspect]
     Indication: MULTIPLE SCLEROSIS
     Route: 030
     Dates: start: 19970401, end: 19991227
  2. AVONEX [Suspect]
     Route: 030
     Dates: start: 20020101, end: 20040101
  3. AVONEX [Suspect]
     Route: 030
     Dates: start: 20050706, end: 20090408
  4. PRIMIDONE [Concomitant]
     Dates: start: 20040801
  5. PRIMIDONE [Concomitant]
  6. TEGRETOL [Concomitant]
     Indication: CONVULSION
     Dates: end: 20040101
  7. NEURONTIN [Concomitant]
     Indication: MYALGIA
  8. NEURONTIN [Concomitant]
  9. WELLBUTRIN XL [Concomitant]
  10. ATENOLOL [Concomitant]
  11. ATENOLOL [Concomitant]
  12. ATENOLOL [Concomitant]
  13. AMITRIPTYLINE [Concomitant]
  14. AMITRIPTYLINE [Concomitant]
  15. LESCOL [Concomitant]
  16. HYDROCHLOROTHIAZIDE [Concomitant]
  17. CLONAZEPAM [Concomitant]
  18. CLONAZEPAM [Concomitant]
  19. FUROSEMIDE [Concomitant]
  20. FUROSEMIDE [Concomitant]
  21. FUROSEMIDE [Concomitant]
  22. DYNACIRC CR [Concomitant]
  23. COUMADIN [Concomitant]
  24. COUMADIN [Concomitant]
  25. COUMADIN [Concomitant]
  26. COUMADIN [Concomitant]
  27. LEVOTHYROXINE SODIUM [Concomitant]
  28. POTASSIUM [Concomitant]
  29. DURAGESIC-100 [Concomitant]
  30. LESCOL XL [Concomitant]
  31. FIBER [Concomitant]
  32. BLOOD PRESSURE PILL [Concomitant]
  33. MEDICATION (NOS) [Concomitant]
  34. HYDROCODONE [Concomitant]
  35. FIORINAL [Concomitant]
  36. NITROGLYCERIN [Concomitant]
  37. CYCLOBENZAPRINE HCL [Concomitant]
  38. VITAMIN B-12 [Concomitant]
  39. PROVIGIL [Concomitant]
  40. SYMBAX [Concomitant]
  41. SPIRONOLACTONE [Concomitant]

REACTIONS (52)
  - ABDOMINAL DISCOMFORT [None]
  - ABDOMINAL PAIN [None]
  - AGEUSIA [None]
  - AMNESIA [None]
  - ARTHRALGIA [None]
  - ASTHENIA [None]
  - BACK PAIN [None]
  - BLINDNESS [None]
  - BLOOD URINE PRESENT [None]
  - CEREBROVASCULAR ACCIDENT [None]
  - CHRONIC OBSTRUCTIVE PULMONARY DISEASE [None]
  - CLUMSINESS [None]
  - CONVULSION [None]
  - DEAFNESS [None]
  - DECREASED APPETITE [None]
  - DEEP VEIN THROMBOSIS [None]
  - DEPRESSION [None]
  - DISTURBANCE IN ATTENTION [None]
  - DIZZINESS [None]
  - DRY MOUTH [None]
  - DYSPHAGIA [None]
  - DYSPHONIA [None]
  - DYSPNOEA [None]
  - DYSURIA [None]
  - FALL [None]
  - FATIGUE [None]
  - GAIT DISTURBANCE [None]
  - GLOSSODYNIA [None]
  - HEADACHE [None]
  - HEART RATE IRREGULAR [None]
  - HYPERLIPIDAEMIA [None]
  - HYPERTENSION [None]
  - HYPOAESTHESIA FACIAL [None]
  - HYPOTHYROIDISM [None]
  - INFECTED NEOPLASM [None]
  - MASTICATION DISORDER [None]
  - MULTIPLE SCLEROSIS RELAPSE [None]
  - MUSCLE SPASMS [None]
  - MUSCULAR WEAKNESS [None]
  - MYALGIA [None]
  - NECK PAIN [None]
  - OBESITY [None]
  - OEDEMA PERIPHERAL [None]
  - OROPHARYNGEAL PAIN [None]
  - PAIN IN EXTREMITY [None]
  - PNEUMONIA [None]
  - SLEEP APNOEA SYNDROME [None]
  - SOMNOLENCE [None]
  - SPINAL OPERATION [None]
  - STOMATITIS [None]
  - TREMOR [None]
  - URINARY HESITATION [None]
